FAERS Safety Report 4782680-4 (Version None)
Quarter: 2005Q3

REPORT INFORMATION
  Report Type: 
  Country: None (occurrence: None)
  Receive Date: 20050929
  Receipt Date: 20050630
  Transmission Date: 20060218
  Serious: No
  Sender: FDA-Public Use
  Company Number: 409869

PATIENT
  Age: 45 Year
  Sex: Female

DRUGS (5)
  1. COREG [Suspect]
     Indication: HYPERTENSION
     Route: 048
  2. LASIX [Suspect]
     Indication: DRUG USE FOR UNKNOWN INDICATION
     Route: 065
  3. K-DUR 10 [Suspect]
     Indication: DRUG USE FOR UNKNOWN INDICATION
     Route: 065
  4. ECOTRIN [Suspect]
     Indication: DRUG USE FOR UNKNOWN INDICATION
     Route: 065
  5. ZESTORETIC [Suspect]
     Indication: DRUG USE FOR UNKNOWN INDICATION
     Route: 065

REACTIONS (2)
  - DRUG INTERACTION [None]
  - SWELLING [None]
